FAERS Safety Report 5235882-7 (Version None)
Quarter: 2007Q1

REPORT INFORMATION
  Report Type: 
  Country: None (occurrence: None)
  Receive Date: 20061208
  Receipt Date: 20051221
  Transmission Date: 20070707
  Serious: Yes (Other)
  Sender: FDA-Public Use
  Company Number: 2005UW19302

PATIENT
  Age: 63 Year
  Sex: Female
  Weight: 63.502 kg

DRUGS (5)
  1. CRESTOR [Suspect]
     Indication: BLOOD CHOLESTEROL INCREASED
     Dosage: 10 MG PO
     Route: 048
     Dates: start: 20030101, end: 20051201
  2. NIASPAN [Concomitant]
  3. PLAVIX [Concomitant]
  4. SYNTHROID [Concomitant]
  5. INSULIN [Concomitant]

REACTIONS (4)
  - HEPATIC ENZYME INCREASED [None]
  - LOSS OF CONSCIOUSNESS [None]
  - NAUSEA [None]
  - PRURITUS GENERALISED [None]
